FAERS Safety Report 8761133 (Version 2)
Quarter: 2012Q4

REPORT INFORMATION
  Report Type: Report from Study
  Country: DE (occurrence: DE)
  Receive Date: 20120830
  Receipt Date: 20121102
  Transmission Date: 20130627
  Serious: No
  Sender: FDA-Public Use
  Company Number: DE-009507513-1208DEU010854

PATIENT

DRUGS (4)
  1. PEGINTERFERON ALFA-2B [Suspect]
     Indication: HEPATITIS C
     Dosage: 100 Microgram, qw
     Route: 058
     Dates: start: 20070905, end: 20070914
  2. REBETOL [Suspect]
     Indication: HEPATITIS C
     Dosage: 1000 mg, qd
     Route: 048
     Dates: start: 20070905, end: 20070914
  3. COMBIVIR COATED TABLET [Concomitant]
     Indication: HIV INFECTION
     Dosage: 150 mg/ 300 mg, bid
     Route: 048
  4. TELZIR COATED TABLET [Concomitant]
     Indication: HIV INFECTION
     Dosage: 700 mg, bid
     Route: 048

REACTIONS (2)
  - Nausea [Recovered/Resolved]
  - Vomiting [Recovered/Resolved]
